FAERS Safety Report 7584986-2 (Version None)
Quarter: 2011Q2

REPORT INFORMATION
  Report Type: 
  Country: None (occurrence: None)
  Receive Date: 20110630
  Receipt Date: 20110628
  Transmission Date: 20111010
  Serious: Yes (Other)
  Sender: FDA-Public Use
  Company Number: US-PFIZER INC-2011123994

PATIENT
  Sex: Female
  Weight: 86.168 kg

DRUGS (3)
  1. EFFEXOR XR [Suspect]
     Indication: DEPRESSION
     Dosage: 150 MG, 1X/DAY
     Route: 048
     Dates: end: 20110525
  2. XANAX [Suspect]
     Indication: ANXIETY
     Dosage: 0.5 MG, 3X/DAY
  3. EFFEXOR XR [Suspect]
     Indication: ANXIETY

REACTIONS (5)
  - ANXIETY [None]
  - SUICIDAL IDEATION [None]
  - ABNORMAL BEHAVIOUR [None]
  - PANIC ATTACK [None]
  - SELF-INJURIOUS IDEATION [None]
